FAERS Safety Report 24687193 (Version 1)
Quarter: 2024Q4

REPORT INFORMATION
  Report Type: Spontaneous
  Country: BG (occurrence: BG)
  Receive Date: 20241202
  Receipt Date: 20241202
  Transmission Date: 20250115
  Serious: Yes (Hospitalization)
  Sender: BRISTOL-MYERS SQUIBB COMPANY
  Company Number: BG-BRISTOL-MYERS SQUIBB COMPANY-2024-184240

PATIENT
  Age: 41 Year
  Sex: Male

DRUGS (2)
  1. OPDIVO [Suspect]
     Active Substance: NIVOLUMAB
     Indication: Adenocarcinoma gastric
     Dates: start: 2024
  2. FLOT [Concomitant]
     Indication: Adenocarcinoma gastric

REACTIONS (3)
  - Fatigue [Unknown]
  - Decreased appetite [Unknown]
  - Bone lesion [Unknown]
